FAERS Safety Report 4279524-6 (Version None)
Quarter: 2004Q1

REPORT INFORMATION
  Report Type: 
  Country: None (occurrence: None)
  Receive Date: 20040126
  Receipt Date: 20040126
  Transmission Date: 20041129
  Serious: Yes (Life-Threatening)
  Sender: FDA-Public Use
  Company Number: None

PATIENT
  Age: 61 Year
  Sex: Male

DRUGS (1)
  1. CARBOPLATIN [Suspect]
     Indication: PROSTATE CANCER
     Dosage: 565MG Q 3 WEEKS INTRAVENOUS
     Route: 042
     Dates: start: 20031021, end: 20031114

REACTIONS (7)
  - BLOOD PRESSURE DECREASED [None]
  - COMA [None]
  - DIZZINESS [None]
  - FALL [None]
  - FEELING ABNORMAL [None]
  - PRURITUS [None]
  - THROAT TIGHTNESS [None]
